FAERS Safety Report 5618357-2 (Version None)
Quarter: 2008Q1

REPORT INFORMATION
  Report Type: 
  Country: None (occurrence: None)
  Receive Date: 20080207
  Receipt Date: 20080107
  Transmission Date: 20080703
  Serious: No
  Sender: FDA-Public Use
  Company Number: US-BAYER-200810444NA

PATIENT
  Sex: Male

DRUGS (2)
  1. AVELOX [Suspect]
     Indication: BRONCHITIS
     Dosage: UNIT DOSE: 400 MG
     Route: 048
     Dates: start: 20071201, end: 20080104
  2. ZITHROMAX [Concomitant]
     Indication: BRONCHITIS

REACTIONS (5)
  - CANDIDIASIS [None]
  - DRY MOUTH [None]
  - STOMATITIS [None]
  - TONGUE DISORDER [None]
  - TONGUE DRY [None]
